FAERS Safety Report 15520345 (Version 1)
Quarter: 2018Q4

REPORT INFORMATION
  Report Type: Spontaneous
  Country: US (occurrence: US)
  Receive Date: 20181017
  Receipt Date: 20181017
  Transmission Date: 20190205
  Serious: Yes (Other)
  Sender: FDA-Public Use
  Company Number: US-009507513-1810USA004317

PATIENT
  Age: 37 Year
  Sex: Female

DRUGS (2)
  1. FOLLISTIM [Suspect]
     Active Substance: FOLLITROPIN
     Indication: IN VITRO FERTILISATION
     Dosage: 225 IU, DAILY
  2. LEUPROLIDE [Concomitant]
     Active Substance: LEUPROLIDE
     Dosage: UNK

REACTIONS (1)
  - Ovarian granulosa-theca cell tumour [Unknown]
